FAERS Safety Report 10369127 (Version 1)
Quarter: 2014Q3

REPORT INFORMATION
  Report Type: Report from Study
  Country: US (occurrence: US)
  Receive Date: 20140807
  Receipt Date: 20140807
  Transmission Date: 20150326
  Serious: Yes (Other)
  Sender: FDA-Public Use
  Company Number: US-ABBVIE-14P-163-1269118-00

PATIENT
  Sex: Female

DRUGS (3)
  1. PREDNISONE. [Concomitant]
     Active Substance: PREDNISONE
     Indication: CROHN^S DISEASE
     Dosage: DAILY
     Route: 048
  2. AMARIN [Concomitant]
     Indication: CROHN^S DISEASE
     Dosage: DAILY
     Route: 048
  3. HUMIRA [Suspect]
     Active Substance: ADALIMUMAB
     Indication: CROHN^S DISEASE
     Dates: start: 20140503, end: 20140712

REACTIONS (3)
  - Ileal perforation [Recovering/Resolving]
  - Abdominal pain upper [Recovering/Resolving]
  - Muscle spasms [Recovering/Resolving]
